FAERS Safety Report 12419433 (Version 1)
Quarter: 2016Q2

REPORT INFORMATION
  Report Type: Spontaneous
  Country: CA (occurrence: None)
  Receive Date: 20160527
  Receipt Date: 20160527
  Transmission Date: 20160815
  Serious: Yes (Hospitalization)
  Sender: FDA-Public Use
  Company Number: None

PATIENT
  Age: 77 Year
  Sex: Female
  Weight: 64.1 kg

DRUGS (18)
  1. LEVOTHYROXINE (SYNTHROID, LEVOTHROID) [Concomitant]
  2. MIDODRINE (PROMATINE) [Concomitant]
  3. REMERON [Concomitant]
     Active Substance: MIRTAZAPINE
  4. SEVELAMER (RENVELA) [Concomitant]
  5. PROCHLORPERAZINE. [Suspect]
     Active Substance: PROCHLORPERAZINE
     Indication: INSOMNIA
  6. CHOLECALCIFEROL (VITAMIN D3) [Concomitant]
  7. MIRALAX [Concomitant]
     Active Substance: POLYETHYLENE GLYCOL 3350
  8. TRAZODONE (DESYREL) [Concomitant]
  9. DARBEPOETIN ALFA (ARANESP) [Concomitant]
  10. COUMADIN [Concomitant]
     Active Substance: WARFARIN SODIUM
  11. TYLENOL [Concomitant]
     Active Substance: ACETAMINOPHEN
  12. XANAX [Concomitant]
     Active Substance: ALPRAZOLAM
  13. RENAVITE RX [Concomitant]
  14. FOLIC ACID. [Concomitant]
     Active Substance: FOLIC ACID
  15. ASPIRIN. [Concomitant]
     Active Substance: ASPIRIN
  16. METOPROLOL SUCCINATE (TOPROL-XL) [Concomitant]
  17. ZOFRAN [Concomitant]
     Active Substance: ONDANSETRON HYDROCHLORIDE
  18. ESCITALOPRAM (LEXAPRO) [Concomitant]

REACTIONS (5)
  - Insomnia [None]
  - Loss of consciousness [None]
  - Head injury [None]
  - Humerus fracture [None]
  - Fall [None]

NARRATIVE: CASE EVENT DATE: 20160523
